FAERS Safety Report 23852354 (Version 3)
Quarter: 2024Q3

REPORT INFORMATION
  Report Type: Spontaneous
  Country: CA (occurrence: None)
  Receive Date: 20240514
  Receipt Date: 20240918
  Transmission Date: 20241017
  Serious: Yes (Hospitalization, Other)
  Sender: ORION
  Company Number: CA-PFIZER INC-202400102431

PATIENT
  Age: 39 Year
  Sex: Female

DRUGS (5)
  1. METHOTREXATE [Suspect]
     Active Substance: METHOTREXATE
     Indication: Rheumatoid arthritis
     Dates: start: 2014, end: 2018
  2. METHOTREXATE [Suspect]
     Active Substance: METHOTREXATE
     Dates: start: 202307
  3. RUXIENCE [Suspect]
     Active Substance: RITUXIMAB-PVVR
     Indication: Rheumatoid arthritis
     Dosage: DAY 1 AND DAY 15
     Dates: start: 20240425
  4. ENBREL [Concomitant]
     Active Substance: ETANERCEPT
     Indication: Rheumatoid arthritis
     Dosage: DISCONTINUED
  5. PLAQUENIL [Concomitant]
     Active Substance: HYDROXYCHLOROQUINE SULFATE

REACTIONS (7)
  - Splenic infection [Recovering/Resolving]
  - Pleurisy [Recovering/Resolving]
  - Breast pain [Unknown]
  - Secretion discharge [Not Recovered/Not Resolved]
  - Cough [Not Recovered/Not Resolved]
  - Joint range of motion decreased [Not Recovered/Not Resolved]
  - Pain [Not Recovered/Not Resolved]

NARRATIVE: CASE EVENT DATE: 20240401
